FAERS Safety Report 16900651 (Version 4)
Quarter: 2020Q3

REPORT INFORMATION
  Report Type: Spontaneous
  Country: US (occurrence: US)
  Receive Date: 20191009
  Receipt Date: 20200703
  Transmission Date: 20201102
  Serious: No
  Sender: FDA-Public Use
  Company Number: US-SA-2019SA271225

PATIENT

DRUGS (23)
  1. METOPROLOL SUCCINATE. [Concomitant]
     Active Substance: METOPROLOL SUCCINATE
  2. CLINDAMYCIN. [Concomitant]
     Active Substance: CLINDAMYCIN
  3. BYDUREON [Concomitant]
     Active Substance: EXENATIDE
  4. HYDROXYZINE HCL [Concomitant]
     Active Substance: HYDROXYZINE HYDROCHLORIDE
  5. METHOTREXATE. [Concomitant]
     Active Substance: METHOTREXATE
  6. ONDANSETRON [Concomitant]
     Active Substance: ONDANSETRON
  7. CARDIZEM LA [Concomitant]
     Active Substance: DILTIAZEM HYDROCHLORIDE
  8. CHLOREX?A [CHLORPHENAMINE TANNATE;MEPYRAMINE TANNATE;PHENYLEPHRINE TAN [Concomitant]
  9. LEVOTHYROXINE. [Concomitant]
     Active Substance: LEVOTHYROXINE
  10. METFORMIN [Concomitant]
     Active Substance: METFORMIN HYDROCHLORIDE
  11. CORLANOR [Concomitant]
     Active Substance: IVABRADINE HYDROCHLORIDE
  12. SERTRALINE [Concomitant]
     Active Substance: SERTRALINE HYDROCHLORIDE
  13. DULOXETINE. [Concomitant]
     Active Substance: DULOXETINE
  14. DIAZEPAM. [Concomitant]
     Active Substance: DIAZEPAM
  15. HYDROCHLOROTH [Concomitant]
     Active Substance: HYDROCHLOROTHIAZIDE
  16. ROSUVASTATIN. [Concomitant]
     Active Substance: ROSUVASTATIN
  17. IBUPROFEN. [Concomitant]
     Active Substance: IBUPROFEN
  18. SYNTHROID [Concomitant]
     Active Substance: LEVOTHYROXINE SODIUM
  19. OMEPRAZOLE. [Concomitant]
     Active Substance: OMEPRAZOLE
  20. BETAMETHASONE DIPROPIONATE AUGMENTED [Concomitant]
     Active Substance: BETAMETHASONE DIPROPIONATE
  21. DUPIXENT [Suspect]
     Active Substance: DUPILUMAB
     Indication: DERMATITIS ATOPIC
     Dosage: 300 MG, QOW
     Route: 058
     Dates: start: 20190830
  22. FOLIC ACID. [Concomitant]
     Active Substance: FOLIC ACID
  23. LETROZOLE. [Concomitant]
     Active Substance: LETROZOLE

REACTIONS (4)
  - Rash [Not Recovered/Not Resolved]
  - Dry skin [Not Recovered/Not Resolved]
  - Dermatitis atopic [Not Recovered/Not Resolved]
  - Rash macular [Not Recovered/Not Resolved]

NARRATIVE: CASE EVENT DATE: 2020
